FAERS Safety Report 11031638 (Version 1)
Quarter: 2015Q2

REPORT INFORMATION
  Report Type: Spontaneous
  Country: US (occurrence: US)
  Receive Date: 20150415
  Receipt Date: 20150415
  Transmission Date: 20150821
  Serious: No
  Sender: FDA-Public Use
  Company Number: US-SA-2014SA174794

PATIENT
  Sex: Female
  Weight: 96.61 kg

DRUGS (9)
  1. DHEA [Concomitant]
     Active Substance: DEHYDROEPIANDROSTERONE-3-SULFATE SODIUM
  2. LACTOBACILLUS ACIDOPHILUS [Concomitant]
     Active Substance: LACTOBACILLUS ACIDOPHILUS
  3. MAGNESIUM [Concomitant]
     Active Substance: MAGNESIUM
  4. CELEBREX [Concomitant]
     Active Substance: CELECOXIB
  5. VITAMIN C [Concomitant]
     Active Substance: ASCORBIC ACID
  6. TRIAMTERENE. [Concomitant]
     Active Substance: TRIAMTERENE
  7. DEMEROL [Suspect]
     Active Substance: MEPERIDINE HYDROCHLORIDE
     Route: 065
  8. TYLENOL [Concomitant]
     Active Substance: ACETAMINOPHEN
  9. GABAPENTIN. [Concomitant]
     Active Substance: GABAPENTIN

REACTIONS (1)
  - Hypersensitivity [Unknown]
